FAERS Safety Report 10470098 (Version 2)
Quarter: 2015Q1

REPORT INFORMATION
  Report Type: Spontaneous
  Country: US (occurrence: US)
  Receive Date: 20140923
  Receipt Date: 20150225
  Transmission Date: 20150720
  Serious: Yes (Death, Hospitalization, Other)
  Sender: FDA-Public Use
  Company Number: US-009507513-1409USA010739

PATIENT
  Sex: Male
  Weight: 104.31 kg

DRUGS (2)
  1. BYETTA [Suspect]
     Active Substance: EXENATIDE
     Indication: TYPE 2 DIABETES MELLITUS
     Dosage: UNK
     Dates: start: 2007, end: 20070525
  2. JANUVIA [Suspect]
     Active Substance: SITAGLIPTIN PHOSPHATE
     Indication: TYPE 2 DIABETES MELLITUS
     Dosage: 100 MG, DAILY
     Route: 048
     Dates: start: 20070801, end: 20080819

REACTIONS (14)
  - Device difficult to use [Unknown]
  - Bile duct stent insertion [Unknown]
  - Cellulitis [Unknown]
  - Death [Fatal]
  - Paracentesis [Unknown]
  - Biliary neoplasm [Unknown]
  - Exploratory operation [Unknown]
  - Cellulitis [Unknown]
  - Blood magnesium decreased [Unknown]
  - Pancreatic carcinoma [Unknown]
  - Bile duct stent insertion [Unknown]
  - Urinary tract disorder [Unknown]
  - Dehydration [Unknown]
  - Blood potassium decreased [Unknown]

NARRATIVE: CASE EVENT DATE: 20130405
